FAERS Safety Report 15984844 (Version 1)
Quarter: 2019Q1

REPORT INFORMATION
  Report Type: Spontaneous
  Country: FR (occurrence: FR)
  Receive Date: 20190220
  Receipt Date: 20190220
  Transmission Date: 20190418
  Serious: Yes (Other)
  Sender: FDA-Public Use
  Company Number: FR-INTERCEPT-PM2019000227

PATIENT

DRUGS (4)
  1. TAHOR [Concomitant]
     Active Substance: ATORVASTATIN CALCIUM
     Route: 048
  2. APROVEL [Concomitant]
     Active Substance: IRBESARTAN
     Route: 048
  3. OCALIVA [Suspect]
     Active Substance: OBETICHOLIC ACID
     Indication: PRIMARY BILIARY CHOLANGITIS
     Dosage: 5 MG, UNK
     Route: 048
     Dates: start: 20180906
  4. CHOLURSO [Suspect]
     Active Substance: URSODIOL
     Indication: PRIMARY BILIARY CHOLANGITIS
     Route: 048
     Dates: start: 20171124

REACTIONS (1)
  - Tooth loss [Recovered/Resolved with Sequelae]

NARRATIVE: CASE EVENT DATE: 2018
